FAERS Safety Report 21040931 (Version 2)
Quarter: 2022Q3

REPORT INFORMATION
  Report Type: Spontaneous
  Country: GB (occurrence: GB)
  Receive Date: 20220704
  Receipt Date: 20220722
  Transmission Date: 20221027
  Serious: Yes (Hospitalization)
  Sender: FDA-Public Use
  Company Number: GB-NOVARTISPH-NVSC2022GB151874

PATIENT
  Sex: Female

DRUGS (11)
  1. OMEPRAZOLE [Suspect]
     Active Substance: OMEPRAZOLE
     Indication: Duodenal ulcer
     Dosage: 20 MG (ONE IN THE MORNING AND ONE AT NIGHT)
     Route: 048
  2. ACETAMINOPHEN [Suspect]
     Active Substance: ACETAMINOPHEN
     Indication: Product used for unknown indication
     Dosage: (AS NECESSARY)
     Route: 048
  3. SERTRALINE [Suspect]
     Active Substance: SERTRALINE HYDROCHLORIDE
     Indication: Product used for unknown indication
     Dosage: 100 MG, QD
     Route: 048
  4. TAMSULOSIN [Suspect]
     Active Substance: TAMSULOSIN
     Indication: Product used for unknown indication
     Dosage: 400 UG, QD
     Route: 048
  5. ATORVASTATIN [Suspect]
     Active Substance: ATORVASTATIN
     Indication: Hypercholesterolaemia
     Dosage: 10 MG, QD  (ONE AT NIGHT)
     Route: 048
  6. FUROSEMIDE [Suspect]
     Active Substance: FUROSEMIDE
     Indication: Product used for unknown indication
     Dosage: 20 MG, QD (1 IN THE MORNING)
     Route: 048
  7. LOPERAMIDE [Suspect]
     Active Substance: LOPERAMIDE
     Indication: Product used for unknown indication
     Dosage: UNK (WHEN REQUIRED)
     Route: 048
  8. SPIRONOLACTONE [Suspect]
     Active Substance: SPIRONOLACTONE
     Indication: Product used for unknown indication
     Dosage: 12.5 MG, QD (HALF IN THE MORNING)
     Route: 048
  9. CALCIUM CARBONATE\CHOLECALCIFEROL [Suspect]
     Active Substance: CALCIUM CARBONATE\CHOLECALCIFEROL
     Indication: Product used for unknown indication
     Dosage: 1 DOSAGE FORM, QD  (ONE IN THE MORNING)
     Route: 048
  10. CREON [Suspect]
     Active Substance: PANCRELIPASE AMYLASE\PANCRELIPASE LIPASE\PANCRELIPASE PROTEASE
     Indication: Product used for unknown indication
     Dosage: 25000 (2 WITH EACH MEAL AND ONE WITH SNACKS)
     Route: 048
  11. VITAMIN B [Concomitant]
     Active Substance: VITAMIN B
     Indication: Product used for unknown indication
     Dosage: 1 DOSAGE FORM, BID
     Route: 048

REACTIONS (4)
  - Vomiting [Unknown]
  - Product dispensing error [Recovered/Resolved]
  - Wrong product administered [Recovered/Resolved]
  - Drug dispensed to wrong patient [Unknown]
